FAERS Safety Report 8693903 (Version 2)
Quarter: 2012Q4

REPORT INFORMATION
  Report Type: 
  Country: US (occurrence: US)
  Receive Date: 20120731
  Receipt Date: 20120912
  Transmission Date: 20130627
  Serious: No
  Sender: FDA-Public Use
  Company Number: US-PFIZER INC-2012182497

PATIENT
  Age: 63 Year
  Sex: Female
  Weight: 90.7 kg

DRUGS (5)
  1. AMLODIPINE BESILATE [Suspect]
     Indication: HYPERTENSION
     Dosage: 2.5 mg, daily at bedtime
     Route: 048
     Dates: start: 20120724, end: 20120726
  2. ATENOLOL [Concomitant]
     Indication: HYPERTENSION
     Dosage: 100 mg, daily
  3. ZOCOR [Concomitant]
     Indication: BLOOD CHOLESTEROL
     Dosage: 40 mg, UNK
     Dates: end: 201207
  4. DOXAZOSIN [Concomitant]
     Dosage: 1 mg, UNK
  5. LOSARTAN [Concomitant]
     Dosage: 100 mg, UNK

REACTIONS (5)
  - Heart rate increased [Recovered/Resolved]
  - Hallucination [Recovered/Resolved]
  - Paraesthesia [Recovered/Resolved]
  - Swelling [Not Recovered/Not Resolved]
  - Urticaria [Not Recovered/Not Resolved]
